FAERS Safety Report 4359911-8 (Version None)
Quarter: 2004Q2

REPORT INFORMATION
  Report Type: 
  Country: None (occurrence: None)
  Receive Date: 20040518
  Receipt Date: 20040505
  Transmission Date: 20050107
  Serious: Yes (Other)
  Sender: FDA-Public Use
  Company Number: PHBS2004IN06189

PATIENT
  Age: 19 Year
  Sex: Female

DRUGS (2)
  1. DICLOFENAC SODIUM [Suspect]
     Indication: PAPILLOMA
  2. CLOXACILLIN [Concomitant]
     Indication: PAPILLOMA

REACTIONS (9)
  - DECREASED INTEREST [None]
  - DEPRESSED MOOD [None]
  - ECCHYMOSIS [None]
  - ERYTHEMA [None]
  - EXTRAVASATION BLOOD [None]
  - LYMPHOCYTIC INFILTRATION [None]
  - PANIC ATTACK [None]
  - PARAESTHESIA [None]
  - PSYCHIATRIC SYMPTOM [None]
